FAERS Safety Report 4665147-3 (Version None)
Quarter: 2005Q2

REPORT INFORMATION
  Report Type: 
  Country: None (occurrence: None)
  Receive Date: 20050517
  Receipt Date: 20050502
  Transmission Date: 20051028
  Serious: Yes (Other)
  Sender: FDA-Public Use
  Company Number: FR_050406288

PATIENT
  Age: 30 Year
  Sex: Male

DRUGS (1)
  1. ZYPREXA [Suspect]
     Indication: DEPERSONALISATION
     Dosage: 10 MG/1 DAY
     Dates: start: 20010101

REACTIONS (1)
  - MYOCARDIAL INFARCTION [None]
